FAERS Safety Report 9292398 (Version 1)
Quarter: 2013Q2

REPORT INFORMATION
  Report Type: Spontaneous
  Country: CL (occurrence: None)
  Receive Date: 20130513
  Receipt Date: 20130513
  Transmission Date: 20140414
  Serious: Yes (Hospitalization)
  Sender: FDA-Public Use
  Company Number: FK201301531

PATIENT
  Age: 84 Year
  Sex: Male
  Weight: 66.4 kg

DRUGS (7)
  1. PACLITAXEL [Suspect]
     Indication: PRODUCT USED FOR UNKNOWN INDICATION
     Dosage: IV (NOT OTHERWISE SPECIFIED)?
     Route: 042
     Dates: start: 20130319, end: 20130402
  2. CARBOPLATIN (CARBOPLATIN) [Concomitant]
  3. GRANISETRON (GRANISETRON) [Concomitant]
  4. ONDASETRON (ONDANSETRON) [Concomitant]
  5. DEXAMETASONA (DEXAMETHASONE) [Concomitant]
  6. CLORFENAMINA (CHLORPHENAMINE MALEATE) [Concomitant]
  7. RANITIDINE (RANITIDINE) [Concomitant]

REACTIONS (5)
  - Neuropathy peripheral [None]
  - Condition aggravated [None]
  - Myalgia [None]
  - Weight decreased [None]
  - Malaise [None]
